FAERS Safety Report 6641844-5 (Version None)
Quarter: 2010Q1

REPORT INFORMATION
  Report Type: 
  Country: None (occurrence: None)
  Receive Date: 20100319
  Receipt Date: 20100203
  Transmission Date: 20100710
  Serious: No
  Sender: FDA-Public Use
  Company Number: US-JNJFOC-20100202617

PATIENT
  Sex: Female

DRUGS (6)
  1. INVEGA SUSTENNA [Suspect]
     Indication: SCHIZOAFFECTIVE DISORDER
     Route: 030
  2. RISPERDAL CONSTA [Suspect]
     Indication: SCHIZOAFFECTIVE DISORDER
     Route: 030
  3. NOVANE [Concomitant]
     Route: 048
  4. CLONAZEPAM [Concomitant]
     Route: 048
  5. LAMICTAL CD [Concomitant]
     Route: 048
  6. ZYPREXA ZYDIS [Concomitant]
     Route: 030

REACTIONS (2)
  - ANXIETY [None]
  - PARANOIA [None]
